FAERS Safety Report 17572693 (Version 1)
Quarter: 2020Q1

REPORT INFORMATION
  Report Type: Spontaneous
  Country: US (occurrence: US)
  Receive Date: 20200323
  Receipt Date: 20200323
  Transmission Date: 20200409
  Serious: Yes (Other)
  Sender: FDA-Public Use
  Company Number: None

PATIENT
  Age: 47 Year
  Sex: Male
  Weight: 67.5 kg

DRUGS (4)
  1. JAKAFI [Concomitant]
     Active Substance: RUXOLITINIB
  2. OXYCODONE [Concomitant]
     Active Substance: OXYCODONE
  3. HYDREA [Concomitant]
     Active Substance: HYDROXYUREA
  4. JAKAFI [Suspect]
     Active Substance: RUXOLITINIB
     Route: 048
     Dates: start: 20200121

REACTIONS (1)
  - Weight decreased [None]

NARRATIVE: CASE EVENT DATE: 20200323
